FAERS Safety Report 23592094 (Version 2)
Quarter: 2024Q1

REPORT INFORMATION
  Report Type: Spontaneous
  Country: CA (occurrence: CA)
  Receive Date: 20240304
  Receipt Date: 20240306
  Transmission Date: 20240409
  Serious: Yes (Other)
  Sender: FDA-Public Use
  Company Number: CA-PFIZER INC-202400034874

PATIENT
  Age: 27 Year
  Sex: Female

DRUGS (5)
  1. ABRILADA [Suspect]
     Active Substance: ADALIMUMAB-AFZB
     Indication: Colitis ulcerative
     Dosage: 160 MG, FIRST DOSE (WEEK 0 = 160MG WEEK 2 = 80MG 40 MG, EVERY 2 WEEKS STARTING WEEK 4)
     Route: 058
     Dates: start: 20240205
  2. ABRILADA [Suspect]
     Active Substance: ADALIMUMAB-AFZB
     Dosage: 160 MG, FIRST DOSE (WEEK 0 = 160MG WEEK 2 = 80MG 40 MG, EVERY 2 WEEKS STARTING WEEK 4)
     Route: 058
     Dates: start: 20240205
  3. ABRILADA [Suspect]
     Active Substance: ADALIMUMAB-AFZB
     Dosage: 40 MG, Q2 WKS,WEEK 0 160MG WEEK 2 80MG,40MG EVERY OTHER WEEK STARTING WEEK 4(40MG,AFTER 2WKS AND 4DA
     Route: 058
     Dates: start: 20240223
  4. BENADRYL [Concomitant]
     Active Substance: DIPHENHYDRAMINE HYDROCHLORIDE
     Indication: Premedication
     Dosage: 25 MG
     Dates: start: 20240223, end: 20240223
  5. PANTOPRAZOLE [Concomitant]
     Active Substance: PANTOPRAZOLE
     Dosage: 1 DF

REACTIONS (9)
  - Abdominal pain upper [Recovered/Resolved]
  - Cough [Recovered/Resolved]
  - Throat irritation [Recovered/Resolved]
  - Throat tightness [Recovered/Resolved]
  - Throat irritation [Recovered/Resolved]
  - Chest discomfort [Recovered/Resolved]
  - Chest discomfort [Recovered/Resolved]
  - Skin irritation [Recovered/Resolved]
  - Inappropriate schedule of product administration [Unknown]

NARRATIVE: CASE EVENT DATE: 20240205
